FAERS Safety Report 17079675 (Version 2)
Quarter: 2019Q4

REPORT INFORMATION
  Report Type: Spontaneous
  Country: US (occurrence: US)
  Receive Date: 20191127
  Receipt Date: 20191127
  Transmission Date: 20200122
  Serious: No
  Sender: FDA-Public Use
  Company Number: US-AUROBINDO-AUR-APL-2019-011883

PATIENT

DRUGS (2)
  1. GABAPENTIN TABLETS USP 600MG [Suspect]
     Active Substance: GABAPENTIN
     Indication: HEADACHE
     Dosage: UNK, ONCE A DAY
     Route: 048
     Dates: start: 201811
  2. GABAPENTIN TABLETS USP 600MG [Suspect]
     Active Substance: GABAPENTIN
     Indication: PAIN

REACTIONS (7)
  - Weight increased [Unknown]
  - Balance disorder [Unknown]
  - Dry mouth [Not Recovered/Not Resolved]
  - Product substitution issue [Unknown]
  - Product dose omission [Unknown]
  - Tremor [Unknown]
  - Constipation [Not Recovered/Not Resolved]
